FAERS Safety Report 7554701-7 (Version None)
Quarter: 2011Q2

REPORT INFORMATION
  Report Type: 
  Country: None (occurrence: None)
  Receive Date: 20110610
  Receipt Date: 20110601
  Transmission Date: 20111010
  Serious: Yes (Hospitalization, Other)
  Sender: FDA-Public Use
  Company Number: 2010JP006800

PATIENT
  Age: 72 Year
  Sex: Male

DRUGS (3)
  1. PREDOHAN (PREDNISOLONE) PER ORAL NOS [Concomitant]
  2. PROGRAF [Suspect]
     Indication: MICROSCOPIC POLYANGIITIS
     Dosage: 2 MG, ORAL
     Route: 048
  3. OMEPRAL (OMEPRAZOLE) PER ORAL NOS [Concomitant]

REACTIONS (3)
  - OFF LABEL USE [None]
  - DYSPNOEA [None]
  - INTERSTITIAL LUNG DISEASE [None]
